FAERS Safety Report 9303728 (Version 1)
Quarter: 2013Q2

REPORT INFORMATION
  Report Type: Spontaneous
  Country: US (occurrence: US)
  Receive Date: 20130522
  Receipt Date: 20130522
  Transmission Date: 20140414
  Serious: Yes (Death, Hospitalization)
  Sender: FDA-Public Use
  Company Number: US-GLAXOSMITHKLINE-A0793558A

PATIENT
  Age: 63 Year
  Sex: Female

DRUGS (1)
  1. AVANDIA [Suspect]
     Indication: DIABETES MELLITUS
     Dosage: 4MG PER DAY
     Route: 048
     Dates: start: 200512, end: 200701

REACTIONS (7)
  - Myocardial infarction [Fatal]
  - Cardiac failure congestive [Unknown]
  - Coronary artery bypass [Unknown]
  - Atrial fibrillation [Unknown]
  - Gangrene [Unknown]
  - Arteriosclerosis [Unknown]
  - Coronary artery disease [Unknown]
